FAERS Safety Report 24935887 (Version 1)
Quarter: 2025Q1

REPORT INFORMATION
  Report Type: Spontaneous
  Country: JP (occurrence: JP)
  Receive Date: 20250206
  Receipt Date: 20250206
  Transmission Date: 20250409
  Serious: Yes (Other)
  Sender: EXELIXIS
  Company Number: JP-TAKEDA-2024TJP013797

PATIENT
  Age: 8 Decade
  Sex: Male

DRUGS (2)
  1. CABOMETYX [Suspect]
     Active Substance: CABOZANTINIB S-MALATE
     Indication: Renal cell carcinoma
     Dosage: 20 MG, QD
     Route: 048
     Dates: start: 20220706, end: 20221026
  2. MIYA-BM [Concomitant]
     Active Substance: CLOSTRIDIUM BUTYRICUM SPORES STRAIN M-55
     Route: 065

REACTIONS (2)
  - Renal cell carcinoma [Unknown]
  - Rash [Unknown]
